FAERS Safety Report 20921173 (Version 1)
Quarter: 2022Q2

REPORT INFORMATION
  Report Type: Spontaneous
  Country: US (occurrence: US)
  Receive Date: 20220606
  Receipt Date: 20220606
  Transmission Date: 20220721
  Serious: Yes (Hospitalization)
  Sender: FDA-Public Use
  Company Number: US-ELI_LILLY_AND_COMPANY-US202205011887

PATIENT
  Age: 79 Year
  Sex: Male

DRUGS (1)
  1. HUMALOG MIX75/25 [Suspect]
     Active Substance: INSULIN LISPRO
     Indication: Type 2 diabetes mellitus
     Dosage: 20 U, PRN (SLIDING SCALE)
     Route: 058

REACTIONS (3)
  - Cerebrovascular accident [Recovering/Resolving]
  - Cerebrovascular accident [Recovering/Resolving]
  - Speech disorder [Unknown]

NARRATIVE: CASE EVENT DATE: 20211201
